FAERS Safety Report 7626876-2 (Version None)
Quarter: 2011Q3

REPORT INFORMATION
  Report Type: 
  Country: None (occurrence: None)
  Receive Date: 20110721
  Receipt Date: 20110707
  Transmission Date: 20111222
  Serious: Yes (Other)
  Sender: FDA-Public Use
  Company Number: US-JNJFOC-20110706593

PATIENT
  Age: 69 Year
  Sex: Female
  Weight: 63.5 kg

DRUGS (5)
  1. TYLENOL-500 [Suspect]
  2. EXTRA STRENGTH TYLENOL [Suspect]
     Indication: HEADACHE
     Dosage: 1-2 CAPLETS, TWICE A DAY IF NECESSARY
     Route: 048
     Dates: end: 20110706
  3. EXTRA STRENGTH TYLENOL PM [Suspect]
     Indication: INSOMNIA
     Dosage: 1 CAPLET PER DAY AS NECESSARY
     Route: 048
     Dates: end: 20110706
  4. EXTRA STRENGTH TYLENOL [Suspect]
     Route: 048
  5. TYLENOL-500 [Suspect]
     Indication: ARTHRITIS
     Dosage: 1 OR 2, TWICE A DAY
     Dates: end: 20110706

REACTIONS (2)
  - HELICOBACTER INFECTION [None]
  - PRODUCT QUALITY ISSUE [None]
